FAERS Safety Report 5305608-7 (Version None)
Quarter: 2007Q2

REPORT INFORMATION
  Report Type: 
  Country: None (occurrence: None)
  Receive Date: 20070424
  Receipt Date: 20070412
  Transmission Date: 20071010
  Serious: Yes (Death, Hospitalization)
  Sender: FDA-Public Use
  Company Number: HQWYE154130AUG06

PATIENT
  Sex: Female

DRUGS (9)
  1. ENBREL [Suspect]
     Indication: RHEUMATOID ARTHRITIS
     Route: 058
     Dates: start: 20051012, end: 20060802
  2. ACTONEL [Concomitant]
     Route: 048
  3. PREDONINE [Concomitant]
     Route: 048
  4. NORVASC [Concomitant]
     Route: 048
  5. PLETAL [Concomitant]
     Route: 048
  6. MEVALOTIN [Concomitant]
     Route: 048
  7. TAKEPRON [Concomitant]
     Route: 048
  8. INSULIN [Concomitant]
     Dosage: UNSPECIFIED
     Route: 042
  9. INSULIN HUMAN [Concomitant]
     Dosage: UNSPECIFIED
     Route: 042

REACTIONS (1)
  - NERVOUS SYSTEM DISORDER [None]
